FAERS Safety Report 13847045 (Version 2)
Quarter: 2017Q4

REPORT INFORMATION
  Report Type: Report from Study
  Country: US (occurrence: US)
  Receive Date: 20170808
  Receipt Date: 20171108
  Transmission Date: 20180320
  Serious: No
  Sender: FDA-Public Use
  Company Number: GXBR2017US002260

PATIENT
  Age: 17 Year
  Sex: Female
  Weight: 72.2 kg

DRUGS (4)
  1. OMNITROPE [Suspect]
     Active Substance: SOMATROPIN
     Indication: GROWTH HORMONE DEFICIENCY
     Dosage: 0.7 MG, QD
     Route: 058
  2. SOLU-CORTEF [Concomitant]
     Active Substance: HYDROCORTISONE SODIUM SUCCINATE
     Indication: PRODUCT USED FOR UNKNOWN INDICATION
     Dosage: UNK
     Route: 065
  3. LEVOXYL [Concomitant]
     Active Substance: LEVOTHYROXINE SODIUM
     Indication: PRODUCT USED FOR UNKNOWN INDICATION
     Dosage: UNK
     Route: 065
  4. OMNITROPE [Suspect]
     Active Substance: SOMATROPIN
     Dosage: 1 MG, QD
     Route: 058
     Dates: start: 201312

REACTIONS (2)
  - Incorrect dosage administered [Recovered/Resolved]
  - Drug administered in wrong device [Recovered/Resolved]

NARRATIVE: CASE EVENT DATE: 201705
